FAERS Safety Report 7247691-8 (Version None)
Quarter: 2011Q1

REPORT INFORMATION
  Report Type: 
  Country: None (occurrence: None)
  Receive Date: 20110127
  Receipt Date: 20110118
  Transmission Date: 20110831
  Serious: Yes (Hospitalization)
  Sender: FDA-Public Use
  Company Number: GB-JNJFOC-20110104749

PATIENT
  Age: 52 Year
  Sex: Male

DRUGS (14)
  1. NEULASTA [Suspect]
     Indication: NON-HODGKIN'S LYMPHOMA
     Route: 058
  2. RITUXIMAB [Suspect]
     Indication: NON-HODGKIN'S LYMPHOMA
     Route: 065
  3. PRAVASTATIN [Concomitant]
     Route: 065
  4. WARFARIN [Concomitant]
     Route: 065
  5. FUROSEMIDE [Concomitant]
     Route: 065
  6. PREDNISOLONE [Suspect]
     Indication: NON-HODGKIN'S LYMPHOMA
     Route: 065
  7. LEVOTHYROXINE SODIUM [Concomitant]
     Route: 065
  8. METOPROLOL [Concomitant]
     Route: 065
  9. VINCRISTINE SULFATE [Suspect]
     Indication: NON-HODGKIN'S LYMPHOMA
     Route: 065
  10. OMEPRAZOLE [Concomitant]
     Route: 065
  11. SPIRONOLACTONE [Concomitant]
     Route: 065
  12. DOXORUBICIN HYDROCHLORIDE [Suspect]
     Indication: NON-HODGKIN'S LYMPHOMA
     Route: 042
  13. CYCLOPHOSPHAMIDE [Suspect]
     Indication: NON-HODGKIN'S LYMPHOMA
     Route: 065
  14. CARBAMAZEPINE [Concomitant]
     Route: 065

REACTIONS (1)
  - ORGANISING PNEUMONIA [None]
